FAERS Safety Report 17043584 (Version 2)
Quarter: 2019Q4

REPORT INFORMATION
  Report Type: Spontaneous
  Country: DE (occurrence: DE)
  Receive Date: 20191118
  Receipt Date: 20191122
  Transmission Date: 20200122
  Serious: Yes (Death, Hospitalization, Other)
  Sender: FDA-Public Use
  Company Number: DE-MYLANLABS-2019M1109990

PATIENT
  Sex: Female

DRUGS (44)
  1. PEGFILGRASTIM [Suspect]
     Active Substance: PEGFILGRASTIM
     Indication: B-CELL LYMPHOMA
     Dosage: 6 MILLIGRAM, Q2WK
     Route: 058
     Dates: start: 20161014
  2. FILGRASTIM [Suspect]
     Active Substance: FILGRASTIM
     Indication: B-CELL LYMPHOMA
     Dosage: 30 MIO IE (1 IN 1 D)
     Route: 058
     Dates: start: 20161031, end: 20161107
  3. LEVOFLOXACIN. [Concomitant]
     Active Substance: LEVOFLOXACIN
     Dosage: 500 MG, 1 IN 3 D
     Route: 048
     Dates: start: 20161017, end: 20161019
  4. FUROSEMIDE. [Concomitant]
     Active Substance: FUROSEMIDE
     Indication: FLUID RETENTION
     Dosage: 2040 MILLIGRAM, AS NECESSARY (2040 MILLIGRAM, FOR 10 DAYS)
     Route: 042
     Dates: start: 20061116, end: 20161125
  5. CYCLOPHOSPHAMIDE. [Suspect]
     Active Substance: CYCLOPHOSPHAMIDE
     Dosage: 1140 MILLIGRAM, Q2W
     Route: 042
     Dates: start: 20160927
  6. PIPERACILLIN. [Concomitant]
     Active Substance: PIPERACILLIN SODIUM
     Indication: OROPHARYNGEAL PAIN
     Dosage: 4 G, 3 IN 1 D
     Route: 042
     Dates: start: 20161019
  7. TORASEMID [Concomitant]
     Active Substance: TORSEMIDE
     Indication: CARDIAC FAILURE
     Dosage: 20 MG, QD
     Route: 048
  8. METOCLOPRAMIDE. [Concomitant]
     Active Substance: METOCLOPRAMIDE
     Dosage: 30 MILLIGRAM, QD
     Route: 048
  9. TORASEMID [Concomitant]
     Active Substance: TORSEMIDE
     Dosage: 10 MILLIGRAM, QD
     Route: 048
     Dates: start: 20161012
  10. PANTOPRAZOLE SODIUM. [Concomitant]
     Active Substance: PANTOPRAZOLE SODIUM
     Indication: PROPHYLAXIS AGAINST GASTROINTESTINAL ULCER
     Dosage: 40 MG, 1 IN 1 D
     Dates: start: 20161107
  11. ALLOPURINOL. [Concomitant]
     Active Substance: ALLOPURINOL
     Dosage: 300 MILLIGRAM, QD
     Route: 048
     Dates: start: 20161114
  12. RIVAROXABAN [Concomitant]
     Active Substance: RIVAROXABAN
     Indication: OEDEMA PERIPHERAL
     Dosage: 15 MG, 1 IN 1 D
     Route: 048
     Dates: start: 20161012
  13. TAZOBACTAM [Concomitant]
     Active Substance: TAZOBACTAM
     Indication: OROPHARYNGEAL PAIN
     Dosage: 500 MG, TID
     Route: 042
     Dates: start: 20161019
  14. ZOPICLONE [Concomitant]
     Active Substance: ZOPICLONE
     Indication: INSOMNIA
  15. ACICLOVIR [Concomitant]
     Active Substance: ACYCLOVIR
     Indication: INFECTION PROPHYLAXIS
     Dosage: 800 MG, 2 IN 1 D
     Route: 048
  16. DEXPANTHENOL. [Concomitant]
     Active Substance: DEXPANTHENOL
     Indication: SKIN ULCER
     Dosage: UNK UNK, AS NECESSARY (PRN ATLEAST BID)
     Route: 062
     Dates: start: 20161114
  17. VINCRISTINE [Suspect]
     Active Substance: VINCRISTINE
     Dosage: 3.04 MILLIGRAM, Q2W
     Route: 042
     Dates: start: 20160927
  18. MIRTAZAPINE. [Concomitant]
     Active Substance: MIRTAZAPINE
     Indication: DEPRESSION
     Dosage: 15 MG, 1 IN 1 D
     Route: 048
     Dates: start: 20160901
  19. MACROGOL [Concomitant]
     Active Substance: POLYETHYLENE GLYCOLS
     Indication: CONSTIPATION
     Dosage: , QD 1 POUCH FOR 3 DAYS1-1-0 BAGS
     Dates: start: 20161114, end: 20161116
  20. AMPHOTERICIN B. [Concomitant]
     Active Substance: AMPHOTERICIN B
     Dosage: 1 PIPETTE, UNK
     Route: 048
     Dates: start: 20161017
  21. SULFAMETHOXAZOLE AND TRIMETHOPRIM [Concomitant]
     Active Substance: SULFAMETHOXAZOLE\TRIMETHOPRIM
     Indication: INFECTION PROPHYLAXIS
     Dosage: 960 MG, 1-0-1, ONLY MONDAY+THURSDAY
     Route: 048
     Dates: start: 20161027
  22. ACICLOVIR [Concomitant]
     Active Substance: ACYCLOVIR
     Dosage: 800 MILLIGRAM, QD
     Route: 048
     Dates: start: 20161027
  23. DOXORUBICIN [Suspect]
     Active Substance: DOXORUBICIN
     Indication: B-CELL LYMPHOMA
     Dosage: 79 MG, Q2WK
     Route: 042
     Dates: start: 20160927, end: 20161124
  24. RITUXIMAB. [Suspect]
     Active Substance: RITUXIMAB
     Dosage: 570 MILLIGRAM, Q2W
     Route: 042
     Dates: start: 20160926
  25. TORASEMID [Concomitant]
     Active Substance: TORSEMIDE
     Dosage: 10 MILLIGRAM, QD (5 MG, BID FOR 41 DAYS)
     Route: 048
     Dates: start: 20160901
  26. COLECALCIFEROL [Concomitant]
     Active Substance: CHOLECALCIFEROL
     Indication: VITAMIN SUPPLEMENTATION
     Dosage: 2000 INTERNATIONAL UNIT, QW
     Route: 048
     Dates: start: 20161027
  27. DULOXETINA                         /01749301/ [Concomitant]
     Active Substance: DULOXETINE
     Dosage: 101.04 MILLIGRAM, QD
     Route: 048
     Dates: start: 20160901
  28. ZOPICLONE [Concomitant]
     Active Substance: ZOPICLONE
     Indication: SLEEP DISORDER
     Dosage: 7.5 MG, 0-0-0-1
     Dates: start: 20161107
  29. AMPICILLIN [Concomitant]
     Active Substance: AMPICILLIN
     Dosage: 750 MG, BID (2-0-2)
     Route: 048
     Dates: start: 20160913
  30. ENOXAPARIN SODIUM. [Concomitant]
     Active Substance: ENOXAPARIN SODIUM
     Indication: THROMBOSIS PROPHYLAXIS
     Dosage: 5 ML, QD (1 IN 1 D) FOR 23 DAYS
     Route: 058
     Dates: start: 20160907, end: 20160929
  31. PREDNISONE. [Suspect]
     Active Substance: PREDNISONE
     Indication: B-CELL LYMPHOMA
     Dosage: 100 MG, QD
     Route: 048
     Dates: start: 20160907, end: 20161128
  32. VINCRISTINE [Suspect]
     Active Substance: VINCRISTINE
     Indication: B-CELL LYMPHOMA
     Dosage: 3.16 MG, Q2WK
     Route: 042
     Dates: start: 20160927, end: 20161124
  33. RITUXIMAB. [Suspect]
     Active Substance: RITUXIMAB
     Indication: B-CELL LYMPHOMA
     Dosage: 590 MG, Q2WK
     Route: 042
     Dates: start: 20160926
  34. LENOGRASTIM [Suspect]
     Active Substance: LENOGRASTIM
     Indication: B-CELL LYMPHOMA
     Dosage: 34 MIO IE (ONCE)
     Route: 058
     Dates: start: 20161019
  35. MACROGOL [Concomitant]
     Active Substance: POLYETHYLENE GLYCOLS
     Dosage: UNK, BID (1 POUCH)
     Route: 048
     Dates: start: 20161117
  36. ALLEVYN [Concomitant]
     Dosage: UNK UNK, QD
     Dates: start: 20161115
  37. PEGFILGRASTIM [Suspect]
     Active Substance: PEGFILGRASTIM
     Dosage: 30 MIO IE/0,5ML, (1 IN 1 D)
     Route: 058
     Dates: start: 20161127
  38. FILGRASTIM [Suspect]
     Active Substance: FILGRASTIM
     Dosage: 1 DOSAGE FORM, QD  (30 MIO IE (1 IN 1 D))
     Route: 058
     Dates: start: 20161127
  39. CYCLOPHOSPHAMIDE. [Suspect]
     Active Substance: CYCLOPHOSPHAMIDE
     Indication: B-CELL LYMPHOMA
     Dosage: 1185 MG, Q2WK
     Route: 042
     Dates: start: 20160927, end: 20161124
  40. DULOXETINA                         /01749301/ [Concomitant]
     Active Substance: DULOXETINE
     Indication: DEPRESSION
     Dosage: 30 MG, TID
     Route: 048
     Dates: start: 20160901
  41. ALLOPURINOL. [Concomitant]
     Active Substance: ALLOPURINOL
     Indication: PROPHYLAXIS
     Dosage: 300 MG, QD
     Route: 048
     Dates: start: 20160906
  42. METOPROLOL SUCCINATE. [Concomitant]
     Active Substance: METOPROLOL SUCCINATE
     Indication: HYPERTENSION
     Dosage: 47.5 MG, 2 IN 1 D
     Route: 048
     Dates: start: 20160901
  43. METOCLOPRAMIDE. [Concomitant]
     Active Substance: METOCLOPRAMIDE
     Indication: NAUSEA
     Dosage: 10 MG, AS NECESSARY
  44. FOLIC ACID. [Concomitant]
     Active Substance: FOLIC ACID
     Indication: PROPHYLAXIS
     Dosage: 10 MILLIGRAM, QW
     Route: 048
     Dates: start: 20161027

REACTIONS (12)
  - Streptococcal infection [Recovered/Resolved]
  - Constipation [Recovered/Resolved]
  - Spinal fracture [Not Recovered/Not Resolved]
  - Weight decreased [Not Recovered/Not Resolved]
  - Hypokalaemia [Recovered/Resolved]
  - Thrombocytopenia [Recovered/Resolved]
  - Dysphagia [Not Recovered/Not Resolved]
  - Dehydration [Recovered/Resolved]
  - Fatigue [Not Recovered/Not Resolved]
  - Pneumonia [Fatal]
  - Anaemia [Not Recovered/Not Resolved]
  - Leukopenia [Recovered/Resolved]

NARRATIVE: CASE EVENT DATE: 201610
